FAERS Safety Report 24829098 (Version 4)
Quarter: 2025Q3

REPORT INFORMATION
  Report Type: Report from Study
  Country: US (occurrence: US)
  Receive Date: 20250110
  Receipt Date: 20250704
  Transmission Date: 20251021
  Serious: Yes (Hospitalization, Other)
  Sender: ABBVIE
  Company Number: US-ABBVIE-6073187

PATIENT
  Age: 48 Year
  Sex: Female

DRUGS (2)
  1. HUMIRA [Suspect]
     Active Substance: ADALIMUMAB
     Indication: Rheumatoid arthritis
     Route: 058
     Dates: start: 2014
  2. HUMIRA [Suspect]
     Active Substance: ADALIMUMAB
     Dosage: CITRATE FREE,?DOSE FORM: SOLUTION FOR INJECTION IN PRE-FILLED PEN
     Route: 058
     Dates: start: 20240824, end: 20250517

REACTIONS (12)
  - Mass [Not Recovered/Not Resolved]
  - Eye discharge [Unknown]
  - Migraine [Unknown]
  - Subcutaneous abscess [Unknown]
  - Eye infection [Unknown]
  - Vitreous floaters [Unknown]
  - Orbital haemorrhage [Unknown]
  - Lymphadenopathy [Unknown]
  - Vitreous floaters [Recovered/Resolved]
  - Open globe injury [Unknown]
  - Vision blurred [Unknown]
  - Diplopia [Unknown]

NARRATIVE: CASE EVENT DATE: 20170101
